FAERS Safety Report 23850255 (Version 2)
Quarter: 2024Q2

REPORT INFORMATION
  Report Type: Spontaneous
  Country: ES (occurrence: ES)
  Receive Date: 20240513
  Receipt Date: 20240523
  Transmission Date: 20240716
  Serious: Yes (Death, Life-Threatening, Hospitalization, Disabling, Other)
  Sender: FDA-Public Use
  Company Number: None

PATIENT
  Age: 75 Year
  Sex: Male
  Weight: 71 kg

DRUGS (3)
  1. CARBOPLATIN [Suspect]
     Active Substance: CARBOPLATIN
     Indication: Adenosquamous cell lung cancer stage IV
     Dosage: 456 MILLIGRAM, CARBOPLATIN (2323A)
     Route: 042
     Dates: start: 20230824, end: 20230824
  2. TAXOL [Suspect]
     Active Substance: PACLITAXEL
     Indication: Adenosquamous cell lung cancer stage IV
     Dosage: 317 MILLIGRAM
     Route: 042
     Dates: start: 20230824, end: 20230824
  3. KEYTRUDA [Suspect]
     Active Substance: PEMBROLIZUMAB
     Indication: Lung neoplasm malignant
     Dosage: 200 Q3W (+ CHEMOTHERAPY):, 1 VIAL OF 4 ML
     Route: 042
     Dates: start: 20230824, end: 20230824

REACTIONS (3)
  - Encephalitis [Fatal]
  - Immune-mediated encephalopathy [Fatal]
  - Encephalitis autoimmune [Recovered/Resolved with Sequelae]

NARRATIVE: CASE EVENT DATE: 20230824
